FAERS Safety Report 4316133-4 (Version None)
Quarter: 2004Q1

REPORT INFORMATION
  Report Type: 
  Country: None (occurrence: None)
  Receive Date: 20040310
  Receipt Date: 20040225
  Transmission Date: 20041129
  Serious: Yes (Death)
  Sender: FDA-Public Use
  Company Number: 2000-BP-00742

PATIENT
  Age: 3 Day
  Sex: Female

DRUGS (3)
  1. VIRAMUNE [Suspect]
     Indication: PROPHYLAXIS AGAINST HIV INFECTION
     Dosage: 1 ML (SINGLE DOSE RECEIVED) PO
     Route: 048
     Dates: start: 20000427, end: 20000427
  2. AZT/MATERNAL (ZIDOVUDINE) (NR) [Concomitant]
  3. ERGOMETRINE/MATERNAL (ERGOMETRINE) (NR) [Concomitant]

REACTIONS (16)
  - BLOOD CREATININE DECREASED [None]
  - CRYING [None]
  - CYANOSIS NEONATAL [None]
  - DRUG EXPOSURE DURING PREGNANCY [None]
  - FEELING HOT [None]
  - GAMMA-GLUTAMYLTRANSFERASE INCREASED [None]
  - HAEMATOCRIT DECREASED [None]
  - HAEMOGLOBIN DECREASED [None]
  - HEPATIC CONGESTION [None]
  - MEAN CELL HAEMOGLOBIN [None]
  - MEAN CELL VOLUME INCREASED [None]
  - NEONATAL DISORDER [None]
  - PLATELET COUNT DECREASED [None]
  - RED BLOOD CELL COUNT DECREASED [None]
  - SEPSIS NEONATAL [None]
  - STAPHYLOCOCCAL BACTERAEMIA [None]
